FAERS Safety Report 7037714-3 (Version None)
Quarter: 2010Q4

REPORT INFORMATION
  Report Type: 
  Country: None (occurrence: None)
  Receive Date: 20101011
  Receipt Date: 20101005
  Transmission Date: 20110411
  Serious: Yes (Other)
  Sender: FDA-Public Use
  Company Number: CA-MERCK-1010USA00566

PATIENT
  Age: 48 Year
  Sex: Female

DRUGS (20)
  1. ZOCOR [Suspect]
     Route: 048
  2. AMITRIPTYLINE HYDROCHLORIDE [Concomitant]
     Route: 065
  3. ASPIRIN [Concomitant]
     Route: 065
  4. BENADRYL [Concomitant]
     Route: 065
  5. CENTRUM [Concomitant]
     Route: 065
  6. DIOVAN [Concomitant]
     Route: 065
  7. EVENING PRIMROSE OIL [Concomitant]
     Route: 065
  8. ZETIA [Concomitant]
     Route: 048
  9. GLYBURIDE [Concomitant]
     Route: 065
  10. MAGNESIUM (UNSPECIFIED) [Concomitant]
     Route: 065
  11. METFORMIN [Concomitant]
     Route: 065
  12. LOVAZA [Concomitant]
     Route: 065
  13. PREDNISONE [Concomitant]
     Route: 065
  14. RANITIDINE [Concomitant]
     Route: 065
  15. REBIF [Suspect]
     Route: 065
  16. REBIF [Suspect]
     Route: 065
  17. REBIF [Suspect]
     Route: 058
  18. NOVO VENLAFAXINE XR [Concomitant]
     Route: 065
  19. VITAMIN D (UNSPECIFIED) [Concomitant]
     Route: 065
  20. VITAMIN E [Concomitant]
     Route: 065

REACTIONS (10)
  - ALANINE AMINOTRANSFERASE INCREASED [None]
  - ANGIOEDEMA [None]
  - ASPARTATE AMINOTRANSFERASE INCREASED [None]
  - DISEASE PROGRESSION [None]
  - GAMMA-GLUTAMYLTRANSFERASE INCREASED [None]
  - HEPATIC ENZYME INCREASED [None]
  - HEPATIC STEATOSIS [None]
  - LIVER DISORDER [None]
  - MULTIPLE SCLEROSIS RELAPSE [None]
  - URTICARIA [None]
